FAERS Safety Report 8947837 (Version 1)
Quarter: 2012Q4

REPORT INFORMATION
  Report Type: Spontaneous
  Country: US (occurrence: None)
  Receive Date: 20121127
  Receipt Date: 20121127
  Transmission Date: 20130627
  Serious: Yes (Hospitalization)
  Sender: FDA-Public Use
  Company Number: TPA2012A09137

PATIENT

DRUGS (1)
  1. EDARBYCLOR [Suspect]

REACTIONS (1)
  - Hyponatraemia [None]
